FAERS Safety Report 6531300-7 (Version None)
Quarter: 2010Q1

REPORT INFORMATION
  Report Type: 
  Country: None (occurrence: None)
  Receive Date: 20100108
  Receipt Date: 20100105
  Transmission Date: 20100710
  Serious: Yes (Hospitalization)
  Sender: FDA-Public Use
  Company Number: US-JNJFOC-20091207247

PATIENT
  Sex: Female
  Weight: 8.29 kg

DRUGS (11)
  1. INFLIXIMAB [Suspect]
     Indication: INFLAMMATORY BOWEL DISEASE
     Route: 042
  2. ANTIBIOTICS [Concomitant]
     Indication: INFLAMMATORY BOWEL DISEASE
  3. METHOTREXATE [Concomitant]
  4. PREVACID [Concomitant]
  5. MICONAZOLE [Concomitant]
  6. NYSTATIN [Concomitant]
  7. VANCOMYCIN [Concomitant]
  8. CYCLOPHOSPHAMIDE [Concomitant]
  9. CLOTRIMAZOLE [Concomitant]
  10. ELIDEL [Concomitant]
     Route: 061
  11. FOLATE [Concomitant]

REACTIONS (1)
  - WEIGHT DECREASED [None]
